FAERS Safety Report 24570183 (Version 6)
Quarter: 2025Q2

REPORT INFORMATION
  Report Type: Spontaneous
  Country: US (occurrence: US)
  Receive Date: 20241031
  Receipt Date: 20250505
  Transmission Date: 20250717
  Serious: No
  Sender: PFIZER
  Company Number: US-PFIZER INC-202400286725

PATIENT
  Age: 13 Year
  Sex: Female
  Weight: 49.53 kg

DRUGS (5)
  1. GENOTROPIN [Suspect]
     Active Substance: SOMATROPIN
     Indication: Growth hormone deficiency
     Dosage: 1.4 MG, DAILY (7 DAYS/WEEK)
     Dates: start: 202403
  2. GENOTROPIN [Suspect]
     Active Substance: SOMATROPIN
  3. GENOTROPIN [Suspect]
     Active Substance: SOMATROPIN
     Dosage: 1.8 MG, 1X/DAY (AT NIGHT)
     Route: 058
  4. SERTRALINE [Concomitant]
     Active Substance: SERTRALINE HYDROCHLORIDE
     Indication: Anxiety
     Dosage: 50 MG, 1X/DAY
  5. METHYLPHENIDATE [Concomitant]
     Active Substance: METHYLPHENIDATE
     Indication: Attention deficit hyperactivity disorder

REACTIONS (5)
  - Underdose [Unknown]
  - Device leakage [Unknown]
  - Device delivery system issue [Unknown]
  - Device physical property issue [Unknown]
  - Product packaging quantity issue [Unknown]

NARRATIVE: CASE EVENT DATE: 20241101
